FAERS Safety Report 14185539 (Version 3)
Quarter: 2018Q1

REPORT INFORMATION
  Report Type: Report from Study
  Country: US (occurrence: US)
  Receive Date: 20171114
  Receipt Date: 20180219
  Transmission Date: 20180508
  Serious: Yes (Disabling, Other)
  Sender: FDA-Public Use
  Company Number: US-CORCEPT THERAPEUTICS INC.-US-2017CRT000893

PATIENT

DRUGS (12)
  1. LISINOPRIL. [Concomitant]
     Active Substance: LISINOPRIL
     Indication: PRODUCT USED FOR UNKNOWN INDICATION
     Dosage: UNK
  2. ASPIRIN                            /00002701/ [Concomitant]
     Active Substance: ASPIRIN
     Indication: PRODUCT USED FOR UNKNOWN INDICATION
     Dosage: UNK
  3. MAGNESIUM [Concomitant]
     Active Substance: MAGNESIUM
     Indication: PRODUCT USED FOR UNKNOWN INDICATION
     Dosage: UNK
  4. CALCIUM [Concomitant]
     Active Substance: CALCIUM
     Indication: PRODUCT USED FOR UNKNOWN INDICATION
     Dosage: UNK
  5. HUMALOG [Concomitant]
     Active Substance: INSULIN LISPRO
     Indication: PRODUCT USED FOR UNKNOWN INDICATION
     Dosage: UNK
  6. METAMUCIL [Concomitant]
     Active Substance: PLANTAGO SEED
     Indication: PRODUCT USED FOR UNKNOWN INDICATION
     Dosage: UNK
  7. KORLYM [Suspect]
     Active Substance: MIFEPRISTONE
     Indication: CUSHING^S SYNDROME
     Dosage: 300 MG, QD
     Route: 048
     Dates: start: 20170731
  8. BUMEX [Concomitant]
     Active Substance: BUMETANIDE
     Indication: PRODUCT USED FOR UNKNOWN INDICATION
     Dosage: UNK
  9. KCL [Concomitant]
     Active Substance: POTASSIUM CHLORIDE
     Indication: PRODUCT USED FOR UNKNOWN INDICATION
     Dosage: UNK
  10. LIVALO [Concomitant]
     Active Substance: PITAVASTATIN CALCIUM
     Indication: PRODUCT USED FOR UNKNOWN INDICATION
     Dosage: UNK
  11. CARVEDILOL. [Concomitant]
     Active Substance: CARVEDILOL
     Indication: PRODUCT USED FOR UNKNOWN INDICATION
     Dosage: UNK
  12. LEVOTHYROXINE. [Concomitant]
     Active Substance: LEVOTHYROXINE
     Indication: PRODUCT USED FOR UNKNOWN INDICATION
     Dosage: UNK

REACTIONS (4)
  - Peripheral venous disease [Recovering/Resolving]
  - Tinea pedis [Recovering/Resolving]
  - Wound secretion [Unknown]
  - Lymphoedema [Recovering/Resolving]

NARRATIVE: CASE EVENT DATE: 20171027
